FAERS Safety Report 4557845-7 (Version None)
Quarter: 2005Q1

REPORT INFORMATION
  Report Type: 
  Country: None (occurrence: None)
  Receive Date: 20050118
  Receipt Date: 20050106
  Transmission Date: 20050727
  Serious: Yes (Life-Threatening)
  Sender: FDA-Public Use
  Company Number: THQ2005A00018

PATIENT
  Age: 54 Year
  Sex: Female

DRUGS (8)
  1. ACTOS [Suspect]
     Indication: DIABETES MELLITUS NON-INSULIN-DEPENDENT
     Dosage: 30 MG (30 MG, 1 IN 1 D)
     Route: 048
     Dates: start: 20041108, end: 20041215
  2. ACENOCOUMAROL            (ACENOCOUMAROL) [Concomitant]
  3. AMARYL [Concomitant]
  4. LANOXIN [Concomitant]
  5. RAMIPRIL [Concomitant]
  6. FUROSEMIDE       (FUROSEMIDE) [Concomitant]
  7. LIPITOR [Concomitant]
  8. NEBILET                 (NEBIVOLOL HYDROCHLORIDE) [Concomitant]

REACTIONS (9)
  - ABDOMINAL DISTENSION [None]
  - ARRHYTHMIA [None]
  - CONSTIPATION [None]
  - DIZZINESS [None]
  - HEADACHE [None]
  - MIGRAINE [None]
  - PALPITATIONS [None]
  - VISUAL ACUITY REDUCED [None]
  - WEIGHT INCREASED [None]
